FAERS Safety Report 13858281 (Version 1)
Quarter: 2017Q3

REPORT INFORMATION
  Report Type: Spontaneous
  Country: US (occurrence: US)
  Receive Date: 20170811
  Receipt Date: 20170811
  Transmission Date: 20171127
  Serious: Yes (Hospitalization, Other)
  Sender: FDA-Public Use
  Company Number: US-TORRENT-00003269

PATIENT
  Age: 15 Year
  Sex: Female

DRUGS (2)
  1. MINOCYCLINE [Suspect]
     Active Substance: MINOCYCLINE\MINOCYCLINE HYDROCHLORIDE
  2. BUPROPION HYDROCHLORIDE. [Suspect]
     Active Substance: BUPROPION HYDROCHLORIDE

REACTIONS (9)
  - Palpitations [None]
  - Insomnia [None]
  - Basedow^s disease [Unknown]
  - Type 1 diabetes mellitus [Unknown]
  - Antinuclear antibody positive [Recovered/Resolved]
  - Irritability [None]
  - Immune system disorder [Unknown]
  - Drug reaction with eosinophilia and systemic symptoms [Unknown]
  - Antinuclear antibody positive [Unknown]
